FAERS Safety Report 5737028-5 (Version None)
Quarter: 2008Q2

REPORT INFORMATION
  Report Type: 
  Country: None (occurrence: None)
  Receive Date: 20080513
  Receipt Date: 20080513
  Transmission Date: 20081010
  Serious: Yes (Other)
  Sender: FDA-Public Use
  Company Number: None

PATIENT
  Sex: Female

DRUGS (4)
  1. DIGOXIN [Suspect]
     Dosage: ONE DAILY PO
     Route: 048
     Dates: start: 20070327, end: 20080512
  2. WARFARIN SODIUM [Concomitant]
  3. CARTIA XT-DILTIAZEMXT- [Concomitant]
  4. FOSINOPRIL SODIUM [Concomitant]

REACTIONS (7)
  - ATRIAL FIBRILLATION [None]
  - BLOOD PRESSURE DECREASED [None]
  - CONFUSIONAL STATE [None]
  - DIZZINESS [None]
  - HALO VISION [None]
  - HEART RATE DECREASED [None]
  - PHARMACEUTICAL PRODUCT COMPLAINT [None]
